FAERS Safety Report 16032979 (Version 1)
Quarter: 2019Q1

REPORT INFORMATION
  Report Type: Spontaneous
  Country: ES (occurrence: ES)
  Receive Date: 20190305
  Receipt Date: 20190305
  Transmission Date: 20190418
  Serious: Yes (Other)
  Sender: FDA-Public Use
  Company Number: ES-SUN PHARMACEUTICAL INDUSTRIES LTD-2019RR-200739

PATIENT
  Age: 67 Year
  Sex: Female

DRUGS (2)
  1. DIETHYLENETRIAMINEPENTAACETIC ACID [Suspect]
     Active Substance: PENTETIC ACID
     Indication: CARCINOID TUMOUR
     Dosage: ()
     Route: 065
  2. OCTREOTIDE. [Suspect]
     Active Substance: OCTREOTIDE
     Indication: CARCINOID TUMOUR
     Dosage: ()
     Route: 065

REACTIONS (2)
  - Ototoxicity [Recovering/Resolving]
  - Deafness neurosensory [Recovering/Resolving]
